FAERS Safety Report 7047413-X (Version None)
Quarter: 2010Q4

REPORT INFORMATION
  Report Type: 
  Country: None (occurrence: None)
  Receive Date: 20101015
  Receipt Date: 20101011
  Transmission Date: 20110411
  Serious: Yes (Other)
  Sender: FDA-Public Use
  Company Number: IT-ROCHE-732493

PATIENT

DRUGS (1)
  1. NAPROXEN [Suspect]
     Indication: PRODUCT USED FOR UNKNOWN INDICATION
     Dosage: CUTOFF DOSE: 750 MG
     Route: 065

REACTIONS (1)
  - ATRIAL FIBRILLATION [None]
